FAERS Safety Report 7927413-5 (Version None)
Quarter: 2011Q4

REPORT INFORMATION
  Report Type: 
  Country: None (occurrence: None)
  Receive Date: 20111118
  Receipt Date: 20111115
  Transmission Date: 20120403
  Serious: Yes (Death)
  Sender: FDA-Public Use
  Company Number: PHEH2011US009648

PATIENT
  Sex: Male

DRUGS (1)
  1. EXJADE [Suspect]
     Indication: DEFICIENCY ANAEMIA
     Route: 048
     Dates: start: 20111102

REACTIONS (2)
  - PNEUMONIA [None]
  - SQUAMOUS CELL CARCINOMA [None]
